FAERS Safety Report 9227029 (Version 1)
Quarter: 2013Q2

REPORT INFORMATION
  Report Type: Spontaneous
  Country: US (occurrence: None)
  Receive Date: 20130410
  Receipt Date: 20130410
  Transmission Date: 20140414
  Serious: Yes (Other)
  Sender: FDA-Public Use
  Company Number: None

PATIENT
  Age: 63 Year
  Sex: Female
  Weight: 80.29 kg

DRUGS (2)
  1. NEULASTA [Suspect]
     Indication: NEOPLASM MALIGNANT
     Dosage: ONE SHOT FOLLOWING EACH CHEMO  IM
     Route: 030
     Dates: start: 20130306, end: 20130312
  2. NEULASTA [Suspect]
     Indication: CHEMOTHERAPY
     Dosage: ONE SHOT FOLLOWING EACH CHEMO  IM
     Route: 030
     Dates: start: 20130306, end: 20130312

REACTIONS (1)
  - Injection site pain [None]
